FAERS Safety Report 8949609 (Version 1)
Quarter: 2012Q4

REPORT INFORMATION
  Report Type: 
  Country: CA (occurrence: CA)
  Receive Date: 20121206
  Receipt Date: 20121206
  Transmission Date: 20130627
  Serious: Yes (Congenital Anomaly, Other)
  Sender: FDA-Public Use
  Company Number: CA-JNJFOC-20121114678

PATIENT

DRUGS (1)
  1. STELARA [Suspect]
     Indication: EXPOSURE VIA FATHER
     Route: 064

REACTIONS (2)
  - Cerebral palsy [Unknown]
  - Asthma [Unknown]
